FAERS Safety Report 23742948 (Version 2)
Quarter: 2024Q2

REPORT INFORMATION
  Report Type: Spontaneous
  Country: JP (occurrence: JP)
  Receive Date: 20240415
  Receipt Date: 20240423
  Transmission Date: 20240716
  Serious: No
  Sender: FDA-Public Use
  Company Number: JP-OPELLA-2024OHG012632

PATIENT
  Age: 8 Decade
  Sex: Male

DRUGS (1)
  1. XYZAL [Suspect]
     Active Substance: LEVOCETIRIZINE DIHYDROCHLORIDE
     Indication: Product used for unknown indication
     Dosage: AT UNKNOWN DOSE AFTER BREAKFAST.

REACTIONS (2)
  - Product use issue [Unknown]
  - No adverse event [Unknown]
